FAERS Safety Report 8391078-1 (Version None)
Quarter: 2012Q2

REPORT INFORMATION
  Report Type: 
  Country: None (occurrence: None)
  Receive Date: 20120515
  Receipt Date: 20120501
  Transmission Date: 20120825
  Serious: Yes (Other)
  Sender: FDA-Public Use
  Company Number: DSA_56329_2012

PATIENT

DRUGS (7)
  1. VENTOLIN [Concomitant]
  2. SIMBICORT TURBUHALER [Concomitant]
  3. LISINOPRIL [Concomitant]
  4. PHYLLOCONTIN [Concomitant]
  5. ANTIHYPERTENSIVES [Concomitant]
  6. DILTIAZEM [Suspect]
     Indication: CHRONIC OBSTRUCTIVE PULMONARY DISEASE
     Dosage: (90 MG)
     Dates: start: 20120330
  7. DIGOXIN [Concomitant]

REACTIONS (1)
  - SUDDEN ONSET OF SLEEP [None]
